FAERS Safety Report 9502171 (Version 1)
Quarter: 2013Q3

REPORT INFORMATION
  Report Type: Spontaneous
  Country: US (occurrence: US)
  Receive Date: 20130905
  Receipt Date: 20130905
  Transmission Date: 20140515
  Serious: No
  Sender: FDA-Public Use
  Company Number: US-009507513-1309USA001689

PATIENT
  Sex: Female

DRUGS (3)
  1. MIRALAX [Suspect]
     Indication: HOSPITALISATION
     Dosage: 68 G, UNKNOWN
     Route: 048
  2. MIRALAX [Suspect]
     Indication: CONSTIPATION
  3. MIRALAX [Suspect]
     Indication: MEDICAL OBSERVATION

REACTIONS (2)
  - Nausea [Not Recovered/Not Resolved]
  - Prescribed overdose [Unknown]
